FAERS Safety Report 5057070-X (Version None)
Quarter: 2006Q3

REPORT INFORMATION
  Report Type: 
  Country: None (occurrence: None)
  Receive Date: 20060721
  Receipt Date: 20060718
  Transmission Date: 20061208
  Serious: Yes (Other)
  Sender: FDA-Public Use
  Company Number: DE-BRACCO-BRO-010340

PATIENT
  Sex: Male

DRUGS (1)
  1. PROHANCE [Suspect]
     Indication: NUCLEAR MAGNETIC RESONANCE IMAGING BRAIN
     Route: 042

REACTIONS (4)
  - ABDOMINAL DISCOMFORT [None]
  - DYSAESTHESIA [None]
  - MUSCULOSKELETAL STIFFNESS [None]
  - TREMOR [None]
